FAERS Safety Report 12139746 (Version 1)
Quarter: 2016Q1

REPORT INFORMATION
  Report Type: Spontaneous
  Country: US (occurrence: None)
  Receive Date: 20160302
  Receipt Date: 20160302
  Transmission Date: 20160526
  Serious: No
  Sender: FDA-Public Use
  Company Number: None

PATIENT
  Age: 27 Year
  Sex: Female

DRUGS (2)
  1. WILATE [Suspect]
     Active Substance: HUMAN COAGULATION FACTOR VIII/VON WILLEBRAND FACTOR COMPLEX
     Indication: VON WILLEBRAND^S DISEASE
     Dosage: 2600 RCOF UNITS AS LOADING DOSE AT ONSET OF BLEED THEN 1500 RCOF UNITS Q 12 HRS IF BLEED
     Route: 042
  2. WILATE [Suspect]
     Active Substance: HUMAN COAGULATION FACTOR VIII/VON WILLEBRAND FACTOR COMPLEX
     Indication: VON WILLEBRAND^S DISEASE
     Dosage: 2600 RCOF UNITS AS LOADING DOSE AT ONSET OF BLEED THEN 1500 RCOF UNITS Q 12 HRS IF BLEED
     Route: 042

REACTIONS (3)
  - Dyspnoea [None]
  - Vision blurred [None]
  - Hypophagia [None]

NARRATIVE: CASE EVENT DATE: 20160226
